FAERS Safety Report 18176021 (Version 1)
Quarter: 2020Q3

REPORT INFORMATION
  Report Type: Spontaneous
  Country: CA (occurrence: CA)
  Receive Date: 20200820
  Receipt Date: 20200820
  Transmission Date: 20201103
  Serious: Yes (Hospitalization)
  Sender: FDA-Public Use
  Company Number: CA-ACCORD-196139

PATIENT
  Age: 75 Year
  Sex: Male

DRUGS (8)
  1. ELIQUIS [Concomitant]
     Active Substance: APIXABAN
     Dosage: FILM?COATED
  2. TYLENOL [Concomitant]
     Active Substance: ACETAMINOPHEN
     Dosage: ELIXIR
     Route: 065
  3. HYDROMORPHONE/HYDROMORPHONE HYDROCHLORIDE [Concomitant]
     Active Substance: HYDROMORPHONE
     Dosage: NOT SPECIFIED
  4. LOXAPINE. [Concomitant]
     Active Substance: LOXAPINE
     Dosage: NOT SPECIFIED
  5. MELATONIN [Concomitant]
     Active Substance: MELATONIN
     Dosage: NOT SPECIFIED
  6. QUETIAPINE. [Suspect]
     Active Substance: QUETIAPINE
     Indication: ANXIETY
     Route: 048
  7. BISOPROLOL [Concomitant]
     Active Substance: BISOPROLOL
  8. RAMIPRIL. [Concomitant]
     Active Substance: RAMIPRIL

REACTIONS (9)
  - Restlessness [Unknown]
  - Blood creatine phosphokinase increased [Unknown]
  - Cogwheel rigidity [Unknown]
  - Hyperhidrosis [Unknown]
  - Blood pressure fluctuation [Unknown]
  - Camptocormia [Unknown]
  - Parkinsonian rest tremor [Unknown]
  - Serotonin syndrome [Unknown]
  - Neuroleptic malignant syndrome [Unknown]
